FAERS Safety Report 9775206 (Version 1)
Quarter: 2013Q4

REPORT INFORMATION
  Report Type: Spontaneous
  Country: US (occurrence: None)
  Receive Date: 20131219
  Receipt Date: 20131219
  Transmission Date: 20140711
  Serious: No
  Sender: FDA-Public Use
  Company Number: None

PATIENT
  Age: 49 Year
  Sex: Female
  Weight: 69.85 kg

DRUGS (1)
  1. ADIPEX-P [Suspect]
     Indication: WEIGHT CONTROL

REACTIONS (3)
  - Muscle spasms [None]
  - Alopecia [None]
  - Respiratory disorder [None]
